FAERS Safety Report 9541981 (Version 1)
Quarter: 2013Q3

REPORT INFORMATION
  Report Type: Report from Study
  Country: CN (occurrence: CN)
  Receive Date: 20130923
  Receipt Date: 20130923
  Transmission Date: 20140515
  Serious: Yes (Other)
  Sender: FDA-Public Use
  Company Number: CN-BAYER-2013-111857

PATIENT
  Age: 26 Year
  Sex: Female

DRUGS (2)
  1. ASPIRIN [Suspect]
     Indication: ANTICOAGULANT THERAPY
     Dosage: UNK
     Route: 048
  2. DIPYRIDAMOLE [Concomitant]
     Indication: ANTICOAGULANT THERAPY

REACTIONS (3)
  - Maternal exposure during pregnancy [None]
  - Caesarean section [None]
  - Oligohydramnios [None]
